FAERS Safety Report 7838158 (Version 2)
Quarter: 2012Q4

REPORT INFORMATION
  Report Type: Report from Study
  Country: FR (occurrence: FR)
  Receive Date: 20110303
  Receipt Date: 20120921
  Transmission Date: 20130627
  Serious: Yes (Other)
  Sender: FDA-Public Use
  Company Number: FR-BIOGENIDEC-2011BI007011

PATIENT
  Age: 54 Year
  Sex: Female

DRUGS (4)
  1. TYSABRI [Suspect]
     Indication: MULTIPLE SCLEROSIS
     Route: 042
     Dates: start: 20080624
  2. VITAMIN D [Concomitant]
  3. CERIS [Concomitant]
     Indication: BLADDER DYSFUNCTION
  4. ANTALGIC [Concomitant]

REACTIONS (1)
  - Neoplasm malignant [Recovered/Resolved]
